FAERS Safety Report 9207757 (Version 1)
Quarter: 2013Q2

REPORT INFORMATION
  Report Type: Spontaneous
  Country: US (occurrence: US)
  Receive Date: 20130403
  Receipt Date: 20130403
  Transmission Date: 20140414
  Serious: Yes (Hospitalization)
  Sender: FDA-Public Use
  Company Number: US-GLAXOSMITHKLINE-A0854520A

PATIENT
  Age: 80 Year
  Sex: Female

DRUGS (12)
  1. REQUIP [Suspect]
     Indication: RESTLESS LEGS SYNDROME
     Dosage: 1MG VARIABLE DOSE
     Route: 048
     Dates: start: 2006
  2. KLONOPIN [Concomitant]
  3. DOXEPIN [Concomitant]
  4. CRESTOR [Concomitant]
  5. RESTORIL [Concomitant]
  6. MIRAPEX [Concomitant]
  7. PRILOSEC [Concomitant]
  8. POTASSIUM [Concomitant]
  9. COUMADIN [Concomitant]
  10. GLYBURIDE [Concomitant]
  11. SINGULAIR [Concomitant]
  12. SYNTHROID [Concomitant]

REACTIONS (3)
  - Hospitalisation [Unknown]
  - Expired drug administered [Unknown]
  - Therapeutic response delayed [Unknown]
